FAERS Safety Report 7575596-1 (Version None)
Quarter: 2011Q2

REPORT INFORMATION
  Report Type: 
  Country: None (occurrence: None)
  Receive Date: 20110627
  Receipt Date: 20110623
  Transmission Date: 20111010
  Serious: Yes (Other)
  Sender: FDA-Public Use
  Company Number: US-UCBSA-028254

PATIENT
  Sex: Female

DRUGS (3)
  1. WELLBUTRIN [Concomitant]
  2. CIMZIA [Suspect]
     Indication: CROHN'S DISEASE
     Route: 058
     Dates: start: 20081119, end: 20110416
  3. VICODIN [Concomitant]

REACTIONS (5)
  - ABDOMINAL PAIN LOWER [None]
  - PNEUMONIA [None]
  - BRONCHITIS [None]
  - NASOPHARYNGITIS [None]
  - HEADACHE [None]
